FAERS Safety Report 15129313 (Version 1)
Quarter: 2018Q3

REPORT INFORMATION
  Report Type: Spontaneous
  Country: US (occurrence: US)
  Receive Date: 20180711
  Receipt Date: 20180711
  Transmission Date: 20181010
  Serious: No
  Sender: FDA-Public Use
  Company Number: US-GLAXOSMITHKLINE-US2018120271

PATIENT
  Sex: Female

DRUGS (17)
  1. FLUTICASONE PROPIONATE. [Concomitant]
     Active Substance: FLUTICASONE PROPIONATE
  2. TRIAMTERENE/HYDROCHLOROTHIAZIDE [Concomitant]
     Active Substance: HYDROCHLOROTHIAZIDE\TRIAMTERENE
  3. CRANBERRY TABLET [Concomitant]
  4. LOSARTAN. [Concomitant]
     Active Substance: LOSARTAN
  5. MUCINEX [Concomitant]
     Active Substance: GUAIFENESIN
  6. SIMVASTATIN. [Concomitant]
     Active Substance: SIMVASTATIN
  7. GLUCOSAMINE HYDROCHLORIDE [Concomitant]
     Active Substance: GLUCOSAMINE HYDROCHLORIDE
  8. VITAMIN B12 [Concomitant]
     Active Substance: CYANOCOBALAMIN
  9. ADVAIR DISKUS [Suspect]
     Active Substance: FLUTICASONE PROPIONATE\SALMETEROL XINAFOATE
     Indication: CHRONIC OBSTRUCTIVE PULMONARY DISEASE
     Dosage: UNK UNK, U
     Route: 055
     Dates: start: 2013
  10. BUDESONIDE. [Concomitant]
     Active Substance: BUDESONIDE
  11. METOPROLOL. [Concomitant]
     Active Substance: METOPROLOL
  12. SERTRALINE [Concomitant]
     Active Substance: SERTRALINE HYDROCHLORIDE
  13. ADVAIR DISKUS [Suspect]
     Active Substance: FLUTICASONE PROPIONATE\SALMETEROL XINAFOATE
     Indication: PULMONARY FIBROSIS
  14. MAGNESIUM [Concomitant]
     Active Substance: MAGNESIUM
  15. VITAMIN C [Concomitant]
     Active Substance: ASCORBIC ACID
  16. IPRATROPIUM AND SALBUTAMOL [Concomitant]
  17. PANTOPRAZOLE [Concomitant]
     Active Substance: PANTOPRAZOLE

REACTIONS (4)
  - Product use in unapproved indication [Unknown]
  - Off label use [Unknown]
  - Tremor [Not Recovered/Not Resolved]
  - Rehabilitation therapy [Unknown]
